FAERS Safety Report 15525047 (Version 2)
Quarter: 2018Q4

REPORT INFORMATION
  Report Type: Spontaneous
  Country: GB (occurrence: GB)
  Receive Date: 20181018
  Receipt Date: 20181114
  Transmission Date: 20190205
  Serious: Yes (Death, Hospitalization)
  Sender: FDA-Public Use
  Company Number: GB-CONCORDIA PHARMACEUTICALS INC.-E2B_00016926

PATIENT
  Age: 86 Year
  Sex: Male
  Weight: 78.1 kg

DRUGS (25)
  1. SALMETEROL [Concomitant]
     Active Substance: SALMETEROL
  2. MONOFER [Concomitant]
     Active Substance: IRON ISOMALTOSIDE 1000
     Indication: ANAEMIA OF CHRONIC DISEASE
     Route: 042
     Dates: start: 20180831, end: 20180831
  3. CASSIA [Concomitant]
  4. PREDNISOLONE SODIUM PHOSPHATE. [Concomitant]
     Active Substance: PREDNISOLONE SODIUM PHOSPHATE
  5. DIGOXIN. [Concomitant]
     Active Substance: DIGOXIN
  6. ONDANSETRON [Concomitant]
     Active Substance: ONDANSETRON
  7. CLENIL MODULITE [Concomitant]
     Active Substance: BECLOMETHASONE DIPROPIONATE
  8. POTASSIUM PERMANGANATE [Concomitant]
     Active Substance: POTASSIUM PERMANGANATE
  9. CALCIUM CARBONATE. [Concomitant]
     Active Substance: CALCIUM CARBONATE
  10. METOCLOPRAMIDE. [Concomitant]
     Active Substance: METOCLOPRAMIDE
  11. VALACICLOVIR [Concomitant]
     Active Substance: VALACYCLOVIR HYDROCHLORIDE
  12. PREDNISOLONE. [Suspect]
     Active Substance: PREDNISOLONE
     Indication: HYPERSENSITIVITY VASCULITIS
  13. FUROSEMIDE. [Concomitant]
     Active Substance: FUROSEMIDE
  14. CYCLIZINE [Concomitant]
     Active Substance: CYCLIZINE
  15. FOLIC ACID. [Concomitant]
     Active Substance: FOLIC ACID
  16. DERMOVATE [Concomitant]
     Active Substance: CLOBETASOL
  17. ACETYLSALICYLIC ACID [Concomitant]
     Active Substance: ASPIRIN
  18. BISOPROLOL [Concomitant]
     Active Substance: BISOPROLOL
  19. LAXIDO [Concomitant]
     Active Substance: POLYETHYLENE GLYCOL 3350\POTASSIUM CHLORIDE\SODIUM BICARBONATE\SODIUM CHLORIDE
  20. ENOXAPARIN SODIUM. [Concomitant]
     Active Substance: ENOXAPARIN SODIUM
  21. SALBUTAMOL [Concomitant]
     Active Substance: ALBUTEROL
  22. OXYCODONE [Concomitant]
     Active Substance: OXYCODONE
  23. DIHYDROCODEINE [Concomitant]
     Active Substance: DIHYDROCODEINE
  24. PARACETAMOL [Concomitant]
     Active Substance: ACETAMINOPHEN
  25. RANITIDINE. [Concomitant]
     Active Substance: RANITIDINE
     Dosage: GASTROPROTECTION

REACTIONS (2)
  - Gastrointestinal haemorrhage [Fatal]
  - Haematemesis [Not Recovered/Not Resolved]
